FAERS Safety Report 4377569-9 (Version None)
Quarter: 2004Q2

REPORT INFORMATION
  Report Type: 
  Country: None (occurrence: None)
  Receive Date: 20040608
  Receipt Date: 20040527
  Transmission Date: 20050107
  Serious: Yes (Hospitalization)
  Sender: FDA-Public Use
  Company Number: 04P-056-0255069-00

PATIENT
  Age: 72 Year
  Sex: Female

DRUGS (11)
  1. FERO-GRAD TABLETS (FERO-GRADUMET FILMTAB) (FERROUS SULFATE) (FERROUS S [Suspect]
     Indication: EAR INFECTION
     Dosage: PER ORAL
     Route: 048
     Dates: start: 20021212, end: 20030113
  2. FERO-GRAD TABLETS (FERO-GRADUMET FILMTAB) (FERROUS SULFATE) (FERROUS S [Suspect]
     Indication: PHARYNGITIS
     Dosage: PER ORAL
     Route: 048
     Dates: start: 20021212, end: 20030113
  3. FERO-GRAD TABLETS (FERO-GRADUMET FILMTAB) (FERROUS SULFATE) (FERROUS S [Suspect]
     Indication: RHINITIS
     Dosage: PER ORAL
     Route: 048
     Dates: start: 20021212, end: 20030113
  4. FORCAPIL [Suspect]
     Indication: DRUG USE FOR UNKNOWN INDICATION
     Dates: start: 20021212, end: 20030113
  5. TERBINAFINE HCL [Suspect]
     Indication: DRUG USE FOR UNKNOWN INDICATION
     Dates: start: 20021212, end: 20030113
  6. BETAMETHASONE [Concomitant]
  7. POLERY [Concomitant]
  8. CEFPODOXIME PROXETIL [Concomitant]
  9. PSEUDOEPHEDRINE HCL [Concomitant]
  10. DERINOX [Concomitant]
  11. TIXOCORTOL PIVALATE [Concomitant]

REACTIONS (11)
  - BURNING SENSATION [None]
  - CHILLS [None]
  - CORNEAL LESION [None]
  - INFLAMMATION [None]
  - PERIANAL ERYTHEMA [None]
  - PYREXIA [None]
  - RASH PUSTULAR [None]
  - RENAL FAILURE [None]
  - SKIN DESQUAMATION [None]
  - STEVENS-JOHNSON SYNDROME [None]
  - VASCULITIS [None]
